FAERS Safety Report 6567179-7 (Version None)
Quarter: 2010Q1

REPORT INFORMATION
  Report Type: 
  Country: None (occurrence: None)
  Receive Date: 20100202
  Receipt Date: 20100115
  Transmission Date: 20100710
  Serious: Yes (Hospitalization, Other)
  Sender: FDA-Public Use
  Company Number: CHPA2010US01161

PATIENT
  Age: 71 Year
  Sex: Male
  Weight: 77.098 kg

DRUGS (15)
  1. EXCEDRIN (MIGRAINE) [Suspect]
     Indication: ANTICOAGULANT THERAPY
     Dosage: 2 DF, BID
     Route: 048
  2. EXCEDRIN (MIGRAINE) [Suspect]
     Indication: PAIN
  3. MORPHINE [Suspect]
     Dosage: UNK, UNK
  4. CAPTOPRIL [Concomitant]
     Indication: HYPERTENSION
     Dosage: 1 DF, QD
     Route: 048
  5. ALLOPURINOL [Concomitant]
     Indication: GOUT
     Dosage: UNK
     Route: 048
  6. INSULIN [Concomitant]
     Indication: DIABETES MELLITUS
     Dosage: UNK, BID
     Route: 058
  7. LASIX [Concomitant]
     Indication: DYSURIA
     Dosage: UNK
     Route: 048
  8. SIMVASTATIN [Concomitant]
     Dosage: 1 DF, QHS
     Route: 048
  9. CARVEDILOL [Concomitant]
     Indication: CARDIAC DISORDER
     Dosage: 1 DF, QD
     Route: 048
  10. TEMAZEPAM [Concomitant]
     Indication: INSOMNIA
     Dosage: UNK
     Route: 048
  11. VICODIN [Concomitant]
     Indication: PAIN
     Dosage: 2 DF, QD
     Route: 048
  12. NITROGLYCERIN [Concomitant]
     Indication: CARDIAC DISORDER
     Dosage: 1 DF, TID
     Route: 048
  13. OMEPRAZOLE [Concomitant]
     Indication: ABDOMINAL DISCOMFORT
     Dosage: UNK
     Route: 048
  14. POTASSIUM [Concomitant]
     Dosage: 1 DF, QD
     Route: 048
  15. ^RITE AID MUCUS RELIEF^ [Concomitant]

REACTIONS (10)
  - CARDIAC FAILURE CONGESTIVE [None]
  - EXPOSURE TO CHEMICAL POLLUTION [None]
  - GOUT [None]
  - HALLUCINATION [None]
  - INTENTIONAL DRUG MISUSE [None]
  - LUNG NEOPLASM MALIGNANT [None]
  - MYOCARDIAL INFARCTION [None]
  - OFF LABEL USE [None]
  - OVERDOSE [None]
  - VASCULAR GRAFT [None]
